FAERS Safety Report 8972896 (Version 2)
Quarter: 2015Q1

REPORT INFORMATION
  Report Type: Report from Study
  Country: GB (occurrence: US)
  Receive Date: 20121218
  Receipt Date: 20150312
  Transmission Date: 20150721
  Serious: Yes (Hospitalization)
  Sender: FDA-Public Use
  Company Number: US-MERCK-1212USA004526

PATIENT
  Age: 60 Year
  Sex: Female
  Weight: 50.3 kg

DRUGS (9)
  1. BEVACIZUMAB [Suspect]
     Active Substance: BEVACIZUMAB
     Indication: GLIOBLASTOMA MULTIFORME
     Dosage: 500 MG, QOW
     Route: 042
     Dates: start: 20110215, end: 20110315
  2. DECADRON [Concomitant]
     Active Substance: DEXAMETHASONE
     Dosage: 2 MG, BID
  3. COLACE [Concomitant]
     Active Substance: DOCUSATE SODIUM
     Dosage: UNK, PRN
  4. TEMODAR [Suspect]
     Active Substance: TEMOZOLOMIDE
     Dosage: 200 MG DAILY, DAYS 1 -5 AND 15- 19 FOR A 28 DAY CYCLE
     Route: 048
  5. TEMODAR [Suspect]
     Active Substance: TEMOZOLOMIDE
     Indication: GLIOBLASTOMA MULTIFORME
     Dosage: 150 MG, QOW
     Route: 048
     Dates: start: 20110215, end: 20110315
  6. BEVACIZUMAB [Suspect]
     Active Substance: BEVACIZUMAB
     Dosage: 795 MG, 1ST DAY AND 5TH DAY IN A 28 DAY CYCLE
     Route: 042
  7. ZOFRAN [Concomitant]
     Active Substance: ONDANSETRON HYDROCHLORIDE
     Dosage: TOTAL DAILY 6 MG, PRN
  8. VIMPAT [Concomitant]
     Active Substance: LACOSAMIDE
     Dosage: 50 MG, BID
  9. BEVACIZUMAB [Suspect]
     Active Substance: BEVACIZUMAB
     Dosage: 795 MG, QD, 14 DAYS
     Route: 042

REACTIONS (3)
  - Fatigue [Unknown]
  - Deep vein thrombosis [Recovering/Resolving]
  - Muscular weakness [Unknown]

NARRATIVE: CASE EVENT DATE: 20110315
